FAERS Safety Report 16112015 (Version 1)
Quarter: 2019Q1

REPORT INFORMATION
  Report Type: Spontaneous
  Country: JP (occurrence: JP)
  Receive Date: 20190325
  Receipt Date: 20190325
  Transmission Date: 20190418
  Serious: Yes (Hospitalization, Other)
  Sender: FDA-Public Use
  Company Number: JP-BAYER-2019-053473

PATIENT
  Age: 45 Year
  Sex: Female

DRUGS (3)
  1. GADOVIST [Suspect]
     Active Substance: GADOBUTROL
     Indication: NUCLEAR MAGNETIC RESONANCE IMAGING
  2. GADOVIST [Suspect]
     Active Substance: GADOBUTROL
     Indication: CERVIX NEOPLASM
     Dosage: 0.1 ML/KG, ONCE
     Route: 042
     Dates: start: 20190314, end: 20190314
  3. GADOVIST [Suspect]
     Active Substance: GADOBUTROL
     Indication: OVARIAN NEOPLASM

REACTIONS (7)
  - Hypersensitivity [None]
  - Increased ventricular afterload [None]
  - Dyspnoea [None]
  - Blood pressure decreased [None]
  - Pulmonary oedema [None]
  - Arteriospasm coronary [None]
  - Throat tightness [None]

NARRATIVE: CASE EVENT DATE: 20190314
